FAERS Safety Report 8232384-0 (Version None)
Quarter: 2012Q1

REPORT INFORMATION
  Report Type: 
  Country: None (occurrence: None)
  Receive Date: 20120323
  Receipt Date: 20120319
  Transmission Date: 20120608
  Serious: Yes (Hospitalization)
  Sender: FDA-Public Use
  Company Number: GB-GLAXOSMITHKLINE-B0789800A

PATIENT
  Sex: Female

DRUGS (6)
  1. ALBUTEROL [Concomitant]
  2. MONTELUKAST [Concomitant]
  3. BECLOMETHASONE DIPROPIONATE [Concomitant]
  4. ZOPICLONE [Concomitant]
  5. OLANZAPINE [Concomitant]
  6. PAROXETINE HCL [Suspect]
     Indication: PRODUCT USED FOR UNKNOWN INDICATION
     Route: 065

REACTIONS (2)
  - INTESTINAL PERFORATION [None]
  - WEIGHT DECREASED [None]
